FAERS Safety Report 5066177-2 (Version None)
Quarter: 2006Q3

REPORT INFORMATION
  Report Type: 
  Country: None (occurrence: None)
  Receive Date: 20060705
  Receipt Date: 20050803
  Transmission Date: 20061208
  Serious: Yes (Hospitalization)
  Sender: FDA-Public Use
  Company Number: US-2005-015678

PATIENT
  Age: 23 Year
  Sex: Female
  Weight: 73.9 kg

DRUGS (3)
  1. YASMIN [Suspect]
     Indication: ORAL CONTRACEPTION
     Dosage: 1 TAB(S), 1X/DAY, ORAL
     Route: 048
     Dates: start: 20041220
  2. ALBUTEROL [Concomitant]
  3. FLOVENT [Concomitant]

REACTIONS (1)
  - CEREBROVASCULAR ACCIDENT [None]
